FAERS Safety Report 7425419-6 (Version None)
Quarter: 2011Q2

REPORT INFORMATION
  Report Type: 
  Country: None (occurrence: None)
  Receive Date: 20110412
  Receipt Date: 20110408
  Transmission Date: 20111010
  Serious: Yes (Hospitalization, Other)
  Sender: FDA-Public Use
  Company Number: DE-2011-0585

PATIENT
  Age: 40 Year
  Sex: Female

DRUGS (9)
  1. NAVELBINE [Suspect]
     Indication: BREAST CANCER
     Dosage: 25 MG ONCE IV
     Route: 042
     Dates: start: 20110323, end: 20110323
  2. IBUPROFEN [Suspect]
     Indication: ABDOMINAL PAIN
  3. NEUROBION [Concomitant]
  4. XELODA [Suspect]
     Indication: BREAST CANCER
     Dosage: 2000 MG QD PO
     Route: 048
     Dates: start: 20110101
  5. PANTOZOL [Concomitant]
  6. NAVELBINE [Suspect]
     Indication: BREAST CANCER
     Dosage: 25 MG ONCE IV
     Route: 042
     Dates: start: 20110202, end: 20110202
  7. NAVELBINE [Suspect]
     Indication: BREAST CANCER
     Dosage: 25 MG/M2 IV
     Route: 042
     Dates: start: 20110126, end: 20110126
  8. NAVELBINE [Suspect]
     Indication: BREAST CANCER
     Dosage: 25 MG IV
     Route: 042
     Dates: start: 20110330
  9. DICLOFENAC MFR: NOT SPECIFIED [Suspect]
     Indication: ABDOMINAL PAIN

REACTIONS (9)
  - HEPATIC STEATOSIS [None]
  - HAIR GROWTH ABNORMAL [None]
  - PALMAR-PLANTAR ERYTHRODYSAESTHESIA SYNDROME [None]
  - LEUKOPENIA [None]
  - HEPATOMEGALY [None]
  - ABDOMINAL PAIN [None]
  - NEUTROPENIA [None]
  - WEIGHT INCREASED [None]
  - FLATULENCE [None]
